FAERS Safety Report 14252334 (Version 2)
Quarter: 2017Q4

REPORT INFORMATION
  Report Type: Spontaneous
  Country: GB (occurrence: GB)
  Receive Date: 20171205
  Receipt Date: 20171228
  Transmission Date: 20180321
  Serious: Yes (Other)
  Sender: FDA-Public Use
  Company Number: GB-MYLANLABS-2017M1072093

PATIENT
  Age: 67 Year
  Sex: Female

DRUGS (1)
  1. EFUDIX CREAM [Suspect]
     Active Substance: FLUOROURACIL
     Indication: ACTINIC KERATOSIS
     Dosage: 5 DAYS A WEEK, WEEKENDS OFF, APPLIED NIGHTLY
     Route: 061
     Dates: start: 201610, end: 20171102

REACTIONS (4)
  - Discomfort [Unknown]
  - Pain [Unknown]
  - Neuropathy peripheral [Unknown]
  - Paraesthesia [Unknown]

NARRATIVE: CASE EVENT DATE: 20171102
